FAERS Safety Report 10668055 (Version 2)
Quarter: 2014Q4

REPORT INFORMATION
  Report Type: Spontaneous
  Country: US (occurrence: US)
  Receive Date: 20141222
  Receipt Date: 20141222
  Transmission Date: 20150529
  Serious: No
  Sender: FDA-Public Use
  Company Number: US-GLAXOSMITHKLINE-A1078117A

PATIENT

DRUGS (10)
  1. ATIVAN [Concomitant]
     Active Substance: LORAZEPAM
  2. DETROL LA [Concomitant]
     Active Substance: TOLTERODINE TARTRATE
  3. OLUX [Concomitant]
     Active Substance: CLOBETASOL PROPIONATE
  4. SYNTHROID [Concomitant]
     Active Substance: LEVOTHYROXINE SODIUM
  5. TARSUM [Concomitant]
     Active Substance: COAL TAR\SALICYLIC ACID
  6. NEXIUM [Concomitant]
     Active Substance: ESOMEPRAZOLE MAGNESIUM
  7. SORIATANE [Suspect]
     Active Substance: ACITRETIN
     Indication: PSORIASIS
     Route: 048
     Dates: start: 20080623
  8. CORDRAN [Concomitant]
     Active Substance: FLURANDRENOLIDE
  9. PRAVASTATIN [Concomitant]
     Active Substance: PRAVASTATIN\PRAVASTATIN SODIUM
  10. TACLONEX [Concomitant]
     Active Substance: BETAMETHASONE DIPROPIONATE\CALCIPOTRIENE\CALCIPOTRIENE HYDRATE

REACTIONS (5)
  - Psoriasis [Unknown]
  - Skin lesion [Unknown]
  - Steroid therapy [Unknown]
  - Skin plaque [Unknown]
  - Drug ineffective [Unknown]
